FAERS Safety Report 6700085-3 (Version None)
Quarter: 2010Q2

REPORT INFORMATION
  Report Type: 
  Country: None (occurrence: None)
  Receive Date: 20100428
  Receipt Date: 20100422
  Transmission Date: 20101027
  Serious: Yes (Hospitalization)
  Sender: FDA-Public Use
  Company Number: JP-BAYER-200939172GPV

PATIENT
  Age: 76 Year
  Sex: Female
  Weight: 52 kg

DRUGS (14)
  1. SORAFENIB [Suspect]
     Indication: HEPATIC NEOPLASM MALIGNANT
     Dosage: TOTAL DAILY DOSE: 800 MG
     Route: 048
     Dates: start: 20091013, end: 20091016
  2. URSO 250 [Concomitant]
     Indication: HEPATIC FUNCTION ABNORMAL
  3. AMLODIN [Concomitant]
     Indication: HYPERTENSION
  4. ALLEGRA [Concomitant]
     Indication: PRURITUS
  5. ALDACTONE [Concomitant]
     Indication: ASCITES
  6. SILECE [Concomitant]
     Indication: INSOMNIA
  7. LASIX [Concomitant]
     Indication: ASCITES
  8. PARIET [Concomitant]
     Indication: GASTRIC ULCER
     Dates: start: 20091017
  9. RESTAMIN [Concomitant]
     Indication: PRURITUS
     Dates: start: 20091013
  10. LOXONIN [Concomitant]
     Indication: NECK PAIN
     Dates: start: 20091017
  11. MIYA-BM [Concomitant]
     Indication: PROPHYLAXIS
     Dates: start: 20091017
  12. AMINOLEBAN-EN [Concomitant]
     Indication: HEPATIC FUNCTION ABNORMAL
     Dates: start: 20091017
  13. MIYARI BACTERIA [Concomitant]
     Dates: start: 20091017
  14. LACTULOSE [Concomitant]
     Dates: start: 20091026

REACTIONS (1)
  - ASCITES [None]
